FAERS Safety Report 23513743 (Version 1)
Quarter: 2024Q1

REPORT INFORMATION
  Report Type: Spontaneous
  Country: CN (occurrence: CN)
  Receive Date: 20240212
  Receipt Date: 20240212
  Transmission Date: 20240410
  Serious: Yes (Other)
  Sender: FDA-Public Use
  Company Number: CN-BAYER-2024A021189

PATIENT
  Age: 72 Year
  Sex: Male

DRUGS (38)
  1. XARELTO [Suspect]
     Active Substance: RIVAROXABAN
     Indication: Anticoagulant therapy
     Dosage: 10 MG, QD
     Route: 048
     Dates: start: 20240122, end: 20240123
  2. LAZERTINIB [Suspect]
     Active Substance: LAZERTINIB
     Dosage: 240 MG, QD
     Route: 048
     Dates: start: 20231211, end: 20240120
  3. AMIVANTAMAB [Suspect]
     Active Substance: AMIVANTAMAB
     Dosage: 1050 MG, Q2WK
     Route: 041
     Dates: start: 20231211, end: 20240120
  4. METHYLPREDNISOLONE SODIUM SUCCINATE [Concomitant]
     Active Substance: METHYLPREDNISOLONE SODIUM SUCCINATE
     Indication: Antiinflammatory therapy
     Dosage: 40 MG, BID
     Route: 041
     Dates: start: 20240121, end: 20240129
  5. METHYLPREDNISOLONE SODIUM SUCCINATE [Concomitant]
     Active Substance: METHYLPREDNISOLONE SODIUM SUCCINATE
     Indication: Antiinflammatory therapy
     Dosage: 40 MG, QD
     Route: 041
     Dates: start: 20240129, end: 20240203
  6. PIPERACILLIN AND TAZOBACTAM [Concomitant]
     Active Substance: PIPERACILLIN SODIUM\TAZOBACTAM SODIUM
     Indication: Anti-infective therapy
     Dosage: UNK
     Dates: start: 20240121
  7. OXYGEN [Concomitant]
     Active Substance: OXYGEN
     Dosage: 10L/MIN
     Route: 055
  8. PERACILLIN [Concomitant]
     Indication: Anti-infective therapy
     Dosage: UNK
     Dates: start: 20240120
  9. ILAPRAZOLE [Concomitant]
     Active Substance: ILAPRAZOLE
     Indication: Antacid therapy
     Dosage: 10 MG, QD
     Route: 041
     Dates: start: 20240121, end: 20240124
  10. ILAPRAZOLE [Concomitant]
     Active Substance: ILAPRAZOLE
     Indication: Gastrointestinal disorder prophylaxis
  11. PIPERACILLIN SODIUM\SULBACTAM SODIUM [Concomitant]
     Active Substance: PIPERACILLIN SODIUM\SULBACTAM SODIUM
     Indication: Infection prophylaxis
     Dosage: 4.5 G EVERY 8 HOURS
     Route: 041
     Dates: start: 20020121, end: 20240124
  12. PIPERACILLIN SODIUM\SULBACTAM SODIUM [Concomitant]
     Active Substance: PIPERACILLIN SODIUM\SULBACTAM SODIUM
     Indication: Infection prophylaxis
     Dosage: 4.5 G EVERY 8 HOURS
     Route: 041
     Dates: start: 20240124, end: 20240203
  13. ACETYLCYSTEINE [Concomitant]
     Active Substance: ACETYLCYSTEINE
     Indication: Productive cough
     Dosage: 0.33 G, BID, NEBULIZATION INHALATION
     Dates: start: 20240124, end: 20240130
  14. ESOMEPRAZOLE SODIUM [Concomitant]
     Active Substance: ESOMEPRAZOLE SODIUM
     Indication: Antacid therapy
     Dosage: 40 MG, QD
     Route: 041
     Dates: start: 20240124, end: 20240203
  15. ESOMEPRAZOLE SODIUM [Concomitant]
     Active Substance: ESOMEPRAZOLE SODIUM
     Indication: Gastrointestinal disorder prophylaxis
  16. AMBROXOL HYDROCHLORIDE [Concomitant]
     Active Substance: AMBROXOL HYDROCHLORIDE
     Indication: Productive cough
     Dosage: 100 ML, QD
     Route: 041
     Dates: start: 20240124, end: 20240203
  17. AMBROXOL HYDROCHLORIDE [Concomitant]
     Active Substance: AMBROXOL HYDROCHLORIDE
     Indication: Productive cough
     Dosage: 30 MG, TID
     Dates: start: 20240125, end: 20240203
  18. AMBROXOL HYDROCHLORIDE [Concomitant]
     Active Substance: AMBROXOL HYDROCHLORIDE
     Indication: Productive cough
     Dosage: 30 MG, QD
     Route: 048
     Dates: start: 20240202, end: 20240202
  19. AMBROXOL HYDROCHLORIDE [Concomitant]
     Active Substance: AMBROXOL HYDROCHLORIDE
     Indication: Productive cough
     Dosage: 20 MG, TID
     Route: 048
     Dates: start: 20240202
  20. SULFAMETHOXAZOLE [Concomitant]
     Active Substance: SULFAMETHOXAZOLE
     Indication: Anti-infective therapy
     Dosage: 2 DF, QD
     Route: 048
     Dates: start: 20240124, end: 20240203
  21. ZOPICLONE [Concomitant]
     Active Substance: ZOPICLONE
     Indication: Insomnia
     Dosage: 2 MG, HS
     Route: 048
     Dates: start: 20240126, end: 20240128
  22. ZOPICLONE [Concomitant]
     Active Substance: ZOPICLONE
     Indication: Insomnia
     Dosage: 2 MG, HS
     Route: 048
     Dates: start: 20240129, end: 20240203
  23. ZOPICLONE [Concomitant]
     Active Substance: ZOPICLONE
     Indication: Insomnia
     Dosage: 2 MG, HS
     Route: 048
     Dates: start: 20240202
  24. ALBUMIN HUMAN [Concomitant]
     Active Substance: ALBUMIN HUMAN
     Indication: Blood albumin abnormal
     Dosage: 20 G, QD
     Route: 041
     Dates: start: 20240122, end: 20240123
  25. DEXMEDETOMIDINE HYDROCHLORIDE [Concomitant]
     Active Substance: DEXMEDETOMIDINE HYDROCHLORIDE
     Indication: Sedation
     Dosage: 0.2 MG, QD, PUMP
     Route: 050
     Dates: start: 20240121, end: 20240122
  26. FUROSEMIDE [Concomitant]
     Active Substance: FUROSEMIDE
     Indication: Diuretic therapy
     Dosage: 20 MG, QD
     Route: 042
     Dates: start: 20240123, end: 20240123
  27. FUROSEMIDE [Concomitant]
     Active Substance: FUROSEMIDE
     Indication: Diuretic therapy
     Dosage: 20 MG, QD
     Route: 042
     Dates: start: 20240201, end: 20240201
  28. POTASSIUM CHLORIDE [Concomitant]
     Active Substance: POTASSIUM CHLORIDE
     Indication: Mineral supplementation
     Dosage: 20 ML, QD
     Route: 048
     Dates: start: 20240122, end: 20240122
  29. POTASSIUM CHLORIDE [Concomitant]
     Active Substance: POTASSIUM CHLORIDE
     Indication: Mineral supplementation
     Dosage: 20 ML, QD
     Route: 048
     Dates: start: 20240125, end: 20240125
  30. POTASSIUM CHLORIDE [Concomitant]
     Active Substance: POTASSIUM CHLORIDE
     Indication: Mineral supplementation
     Dosage: 15 ML, QD
     Route: 048
     Dates: start: 20240126, end: 20240126
  31. POTASSIUM CHLORIDE [Concomitant]
     Active Substance: POTASSIUM CHLORIDE
     Indication: Mineral supplementation
     Dosage: 20 ML, QD
     Route: 048
     Dates: start: 20240130, end: 20240130
  32. POTASSIUM CHLORIDE [Concomitant]
     Active Substance: POTASSIUM CHLORIDE
     Indication: Mineral supplementation
     Dosage: 20 ML, QD
     Route: 048
     Dates: start: 20240201, end: 20240201
  33. POTASSIUM CHLORIDE [Concomitant]
     Active Substance: POTASSIUM CHLORIDE
     Indication: Mineral supplementation
     Dosage: 30 ML, QD
     Route: 048
     Dates: start: 20240202, end: 20240202
  34. ALPRAZOLAM [Concomitant]
     Active Substance: ALPRAZOLAM
     Indication: Insomnia
     Dosage: 270124
     Route: 048
     Dates: start: 20240127, end: 20240127
  35. HUMAN IMMUNOGLOBULIN G [Concomitant]
     Active Substance: HUMAN IMMUNOGLOBULIN G
     Indication: Immune enhancement therapy
     Dosage: 300 ML, QD
     Route: 042
     Dates: start: 20240201, end: 20240201
  36. LEVOFLOXACIN [Concomitant]
     Active Substance: LEVOFLOXACIN
     Indication: Antiinflammatory therapy
     Dosage: 0.5 G, QD
     Route: 048
     Dates: start: 20240202
  37. KETOTIFEN FUMARATE [Concomitant]
     Active Substance: KETOTIFEN FUMARATE
     Indication: Bronchial disorder
     Dosage: 1 MG, QD
     Route: 048
     Dates: start: 20240124, end: 20240124
  38. METHYLPREDNISOLONE [Concomitant]
     Active Substance: METHYLPREDNISOLONE
     Indication: Antiinflammatory therapy
     Dosage: 40 MG, QD
     Route: 048
     Dates: start: 20240202

REACTIONS (3)
  - Embolism venous [Unknown]
  - Fibrin D dimer increased [Unknown]
  - Hypercoagulation [Unknown]

NARRATIVE: CASE EVENT DATE: 20240123
